FAERS Safety Report 7872679-3 (Version None)
Quarter: 2011Q4

REPORT INFORMATION
  Report Type: 
  Country: None (occurrence: None)
  Receive Date: 20111030
  Receipt Date: 20110502
  Transmission Date: 20120403
  Serious: No
  Sender: FDA-Public Use
  Company Number: US-AMGEN-USASP2011022668

PATIENT
  Age: 59 Year
  Sex: Female

DRUGS (5)
  1. ATENOLOL [Concomitant]
     Dosage: 25 MG, UNK
     Route: 048
  2. ENBREL [Suspect]
     Indication: PRODUCT USED FOR UNKNOWN INDICATION
     Dosage: 50 MG, QWK
     Route: 058
  3. ACTONEL [Concomitant]
     Dosage: 150 MG, UNK
     Route: 048
  4. FUROSEMIDE [Concomitant]
     Dosage: 40 MG, UNK
     Route: 048
  5. KLOR-CON M10 [Concomitant]
     Dosage: 10 MEQ, UNK
     Route: 048

REACTIONS (1)
  - ABSCESS LIMB [None]
